FAERS Safety Report 9925707 (Version 1)
Quarter: 2014Q1

REPORT INFORMATION
  Report Type: Spontaneous
  Country: IL (occurrence: IL)
  Receive Date: 20140226
  Receipt Date: 20140226
  Transmission Date: 20141002
  Serious: Yes (Hospitalization)
  Sender: FDA-Public Use
  Company Number: IL-GLAXOSMITHKLINE-B0971809A

PATIENT
  Age: 72 Year
  Sex: Male

DRUGS (1)
  1. VOTRIENT [Suspect]
     Indication: METASTATIC RENAL CELL CARCINOMA
     Dosage: 800MG PER DAY

REACTIONS (2)
  - Hypertension [Recovered/Resolved]
  - Asthenia [Unknown]
